FAERS Safety Report 21077556 (Version 5)
Quarter: 2022Q3

REPORT INFORMATION
  Report Type: Report from Study
  Country: US (occurrence: US)
  Receive Date: 20220713
  Receipt Date: 20220901
  Transmission Date: 20221027
  Serious: No
  Sender: FDA-Public Use
  Company Number: US-SUNOVION-2022SUN002085

PATIENT
  Age: 66 Year
  Sex: Female

DRUGS (3)
  1. KYNMOBI [Suspect]
     Active Substance: APOMORPHINE HYDROCHLORIDE
     Dosage: 10 MG
     Route: 060
     Dates: start: 20220711
  2. KYNMOBI [Suspect]
     Active Substance: APOMORPHINE HYDROCHLORIDE
     Dosage: 15 MG
     Route: 060
     Dates: start: 20220719
  3. KYNMOBI [Suspect]
     Active Substance: APOMORPHINE HYDROCHLORIDE
     Dosage: 20 MG
     Route: 060

REACTIONS (10)
  - Dysgeusia [Recovering/Resolving]
  - Mouth ulceration [Recovering/Resolving]
  - Somnolence [Recovered/Resolved]
  - Headache [Recovered/Resolved]
  - Lip swelling [Recovering/Resolving]
  - Swelling face [Recovering/Resolving]
  - Oedema mouth [Recovering/Resolving]
  - Oral mucosal erythema [Recovering/Resolving]
  - Stomatitis [Recovering/Resolving]
  - Oral pain [Recovering/Resolving]

NARRATIVE: CASE EVENT DATE: 20220711
